FAERS Safety Report 20950231 (Version 1)
Quarter: 2022Q2

REPORT INFORMATION
  Report Type: Spontaneous
  Country: US (occurrence: None)
  Receive Date: 20220610
  Receipt Date: 20220610
  Transmission Date: 20220721
  Serious: Yes (unspecified)
  Sender: FDA-Public Use
  Company Number: None

PATIENT
  Age: 39 Year
  Sex: Female
  Weight: 72 kg

DRUGS (8)
  1. PAXLOVID [Suspect]
     Active Substance: NIRMATRELVIR\RITONAVIR
     Indication: COVID-19
     Dosage: OTHER QUANTITY : 3 COMBO PACK;?FREQUENCY : EVERY 12 HOURS;?
     Route: 048
     Dates: start: 20220609, end: 20220610
  2. PAXLOVID [Concomitant]
     Active Substance: NIRMATRELVIR\RITONAVIR
  3. ALBUTEROL [Concomitant]
     Active Substance: ALBUTEROL
  4. Mucines [Concomitant]
  5. SUDAFED [Concomitant]
     Active Substance: PSEUDOEPHEDRINE HYDROCHLORIDE
  6. BENADRYL [Concomitant]
     Active Substance: DIPHENHYDRAMINE HYDROCHLORIDE
  7. TYLENOL [Concomitant]
     Active Substance: ACETAMINOPHEN
  8. ADVIL [Concomitant]
     Active Substance: IBUPROFEN

REACTIONS (6)
  - Therapy cessation [None]
  - Eye pruritus [None]
  - Eye irritation [None]
  - Skin burning sensation [None]
  - Lip swelling [None]
  - Lip discolouration [None]

NARRATIVE: CASE EVENT DATE: 20220610
